FAERS Safety Report 9358375 (Version 2)
Quarter: 2013Q3

REPORT INFORMATION
  Report Type: Spontaneous
  Country: FR (occurrence: FR)
  Receive Date: 20130620
  Receipt Date: 20130711
  Transmission Date: 20140515
  Serious: Yes (Hospitalization)
  Sender: FDA-Public Use
  Company Number: PHHY2013FR062777

PATIENT
  Age: 6 Year
  Sex: Female

DRUGS (2)
  1. ILARIS [Suspect]
     Indication: MEVALONATE KINASE DEFICIENCY
     Dosage: 45 MG, UNK
     Route: 058
     Dates: start: 20130308, end: 20130308
  2. ILARIS [Suspect]
     Indication: OFF LABEL USE

REACTIONS (6)
  - Cellulitis [Recovering/Resolving]
  - White blood cell count increased [Unknown]
  - Neutrophil count increased [Unknown]
  - C-reactive protein increased [Unknown]
  - Pyrexia [Unknown]
  - Streptococcal abscess [Unknown]
